FAERS Safety Report 15341100 (Version 7)
Quarter: 2019Q2

REPORT INFORMATION
  Report Type: Spontaneous
  Country: CN (occurrence: CN)
  Receive Date: 20180831
  Receipt Date: 20190524
  Transmission Date: 20190711
  Serious: Yes (Other)
  Sender: FDA-Public Use
  Company Number: CN-NOVOPROD-619448

PATIENT
  Age: 41 Year
  Sex: Female
  Weight: 90 kg

DRUGS (5)
  1. LEVEMIR [Suspect]
     Active Substance: INSULIN DETEMIR
     Indication: BLOOD GLUCOSE FLUCTUATION
     Dosage: 6 IU, QD
     Route: 058
     Dates: start: 20180820, end: 20180912
  2. HUMULIN N [Concomitant]
     Active Substance: INSULIN HUMAN
     Indication: TYPE 2 DIABETES MELLITUS
     Dosage: 15 IU, TID
     Dates: start: 20180814, end: 20180820
  3. METFORMIN [Concomitant]
     Active Substance: METFORMIN HYDROCHLORIDE
     Indication: TYPE 2 DIABETES MELLITUS
     Dosage: 100 MG, BID
     Route: 048
     Dates: start: 20171213, end: 20180802
  4. DEXTRIN [Concomitant]
     Active Substance: ICODEXTRIN
     Dosage: 3ML: 300U/ BOX] (6U SUBCUTANEOUS INJECTION ONCE A DAY IN EVENING)
  5. INSULIN ASPART [Suspect]
     Active Substance: INSULIN ASPART
     Indication: BLOOD GLUCOSE FLUCTUATION
     Dosage: 10+8 U,BID
     Route: 058
     Dates: start: 20180820, end: 20180912

REACTIONS (2)
  - Exposure during pregnancy [Recovered/Resolved]
  - Abortion [Recovered/Resolved]

NARRATIVE: CASE EVENT DATE: 20180630
